FAERS Safety Report 5264677-3 (Version None)
Quarter: 2007Q1

REPORT INFORMATION
  Report Type: 
  Country: None (occurrence: None)
  Receive Date: 20061124
  Receipt Date: 20060912
  Transmission Date: 20070707
  Serious: Yes (Other)
  Sender: FDA-Public Use
  Company Number: 2006110877

PATIENT
  Age: 50 Year
  Sex: Female

DRUGS (2)
  1. CADUET [Suspect]
     Indication: DYSLIPIDAEMIA
     Dosage: 5 MG/10MG
  2. CADUET [Suspect]
     Indication: HYPERTENSION
     Dosage: 5 MG/10MG

REACTIONS (2)
  - BLOOD BILIRUBIN INCREASED [None]
  - LIVER FUNCTION TEST ABNORMAL [None]
